FAERS Safety Report 5053308-3 (Version None)
Quarter: 2006Q2

REPORT INFORMATION
  Report Type: 
  Country: None (occurrence: None)
  Receive Date: 20060614
  Receipt Date: 20060307
  Transmission Date: 20061013
  Serious: Yes (Other)
  Sender: FDA-Public Use
  Company Number: 439556

PATIENT
  Age: 49 Year
  Sex: Female

DRUGS (3)
  1. BONIVA [Suspect]
     Indication: OSTEOPOROSIS
     Dosage: 150 MG    ORAL
     Route: 048
     Dates: start: 20060228
  2. AMBIEN [Concomitant]
  3. ADDERALL XR (AMFETAMINE/DEXTROAMPHETAMINE) [Concomitant]

REACTIONS (4)
  - ABDOMINAL PAIN [None]
  - ASTHENIA [None]
  - HYPERHIDROSIS [None]
  - TREMOR [None]
